FAERS Safety Report 9469257 (Version 2)
Quarter: 2013Q3

REPORT INFORMATION
  Report Type: Spontaneous
  Country: US (occurrence: US)
  Receive Date: 20130821
  Receipt Date: 20130919
  Transmission Date: 20140515
  Serious: No
  Sender: FDA-Public Use
  Company Number: US-PFIZER INC-2013242172

PATIENT
  Age: 76 Year
  Sex: Female
  Weight: 76.19 kg

DRUGS (7)
  1. ZOLOFT [Suspect]
     Indication: DEPRESSION
     Dosage: 25 MG, UNK
     Route: 048
     Dates: start: 20120910, end: 201209
  2. ZOLOFT [Suspect]
     Dosage: 100 MG, 1X/DAY
     Route: 048
     Dates: start: 201209, end: 20121001
  3. WARFARIN [Concomitant]
     Dosage: 5 MG, UNK
  4. FUROSEMIDE [Concomitant]
     Dosage: 20 MG, UNK
  5. LISINOPRIL [Concomitant]
     Dosage: 40 MG, UNK
  6. POTASSIUM [Concomitant]
     Dosage: 10 MEQ, UNK
  7. SONATA [Concomitant]
     Indication: SLEEP DISORDER
     Dosage: 5 MG, 1X/DAY (AT BEDTIME)
     Dates: start: 20120827, end: 20130225

REACTIONS (1)
  - Drug ineffective [Unknown]
